FAERS Safety Report 24251334 (Version 1)
Quarter: 2024Q3

REPORT INFORMATION
  Report Type: Spontaneous
  Country: CA (occurrence: CA)
  Receive Date: 20240826
  Receipt Date: 20240826
  Transmission Date: 20241016
  Serious: Yes (Life-Threatening, Hospitalization, Disabling, Other)
  Sender: BRISTOL MYERS SQUIBB
  Company Number: CA-BRISTOL-MYERS SQUIBB COMPANY-2024-133119

PATIENT
  Age: 40 Year
  Sex: Female

DRUGS (255)
  1. ORENCIA [Suspect]
     Active Substance: ABATACEPT
     Indication: Rheumatoid arthritis
     Route: 058
  2. ORENCIA [Suspect]
     Active Substance: ABATACEPT
     Indication: Rheumatoid arthritis
     Route: 040
  3. ORENCIA [Suspect]
     Active Substance: ABATACEPT
     Route: 040
  4. ORENCIA [Suspect]
     Active Substance: ABATACEPT
     Route: 040
  5. ORENCIA [Suspect]
     Active Substance: ABATACEPT
     Indication: Rheumatoid arthritis
  6. ORENCIA [Suspect]
     Active Substance: ABATACEPT
  7. ORENCIA [Suspect]
     Active Substance: ABATACEPT
  8. ORENCIA [Suspect]
     Active Substance: ABATACEPT
  9. ORENCIA [Suspect]
     Active Substance: ABATACEPT
  10. ACETAMINOPHEN [Concomitant]
     Active Substance: ACETAMINOPHEN
     Indication: Rheumatoid arthritis
  11. ACETAMINOPHEN [Concomitant]
     Active Substance: ACETAMINOPHEN
  12. ACETAMINOPHEN AND CODEINE [Concomitant]
     Active Substance: ACETAMINOPHEN\CODEINE PHOSPHATE
     Indication: Product used for unknown indication
  13. ACTEMRA [Concomitant]
     Active Substance: TOCILIZUMAB
     Indication: Rheumatoid arthritis
     Route: 058
  14. ACTEMRA [Concomitant]
     Active Substance: TOCILIZUMAB
     Indication: Abdominal discomfort
     Route: 058
  15. ACTEMRA [Concomitant]
     Active Substance: TOCILIZUMAB
  16. ACTEMRA [Concomitant]
     Active Substance: TOCILIZUMAB
     Route: 058
  17. ACTEMRA [Concomitant]
     Active Substance: TOCILIZUMAB
     Route: 058
  18. ACTEMRA [Concomitant]
     Active Substance: TOCILIZUMAB
     Route: 016
  19. ACTEMRA [Concomitant]
     Active Substance: TOCILIZUMAB
     Route: 058
  20. ACTEMRA [Concomitant]
     Active Substance: TOCILIZUMAB
     Route: 040
  21. ACTEMRA [Concomitant]
     Active Substance: TOCILIZUMAB
     Route: 040
  22. ACTEMRA [Concomitant]
     Active Substance: TOCILIZUMAB
  23. ACTEMRA [Concomitant]
     Active Substance: TOCILIZUMAB
  24. ACTEMRA [Concomitant]
     Active Substance: TOCILIZUMAB
     Route: 058
  25. ACTEMRA [Concomitant]
     Active Substance: TOCILIZUMAB
     Route: 040
  26. ACTEMRA [Concomitant]
     Active Substance: TOCILIZUMAB
     Route: 048
  27. ACTEMRA [Concomitant]
     Active Substance: TOCILIZUMAB
  28. ACTEMRA [Concomitant]
     Active Substance: TOCILIZUMAB
     Route: 061
  29. ACTEMRA [Concomitant]
     Active Substance: TOCILIZUMAB
     Route: 040
  30. ADALIMUMAB [Concomitant]
     Active Substance: ADALIMUMAB
     Indication: Rheumatoid arthritis
     Route: 058
  31. ADALIMUMAB [Concomitant]
     Active Substance: ADALIMUMAB
     Route: 058
  32. ACETAMINOPHEN AND CODEINE [Concomitant]
     Active Substance: ACETAMINOPHEN\CODEINE PHOSPHATE
     Indication: Rheumatoid arthritis
     Route: 016
  33. ACETAMINOPHEN AND CODEINE [Concomitant]
     Active Substance: ACETAMINOPHEN\CODEINE PHOSPHATE
     Route: 048
  34. ACETAMINOPHEN AND CODEINE [Concomitant]
     Active Substance: ACETAMINOPHEN\CODEINE PHOSPHATE
  35. ALENDRONATE SODIUM\CHOLECALCIFEROL [Concomitant]
     Active Substance: ALENDRONATE SODIUM\CHOLECALCIFEROL
     Indication: Rheumatoid arthritis
  36. DICLOFENAC POTASSIUM [Concomitant]
     Active Substance: DICLOFENAC POTASSIUM
     Indication: Product used for unknown indication
  37. LEFLUNOMIDE [Concomitant]
     Active Substance: LEFLUNOMIDE
     Indication: Rheumatoid arthritis
  38. LEFLUNOMIDE [Concomitant]
     Active Substance: LEFLUNOMIDE
  39. LEFLUNOMIDE [Concomitant]
     Active Substance: LEFLUNOMIDE
     Route: 048
  40. PREDNISONE [Concomitant]
     Active Substance: PREDNISONE
     Indication: Product used for unknown indication
     Route: 048
  41. PREDNISONE [Concomitant]
     Active Substance: PREDNISONE
     Route: 048
  42. PREDNISONE [Concomitant]
     Active Substance: PREDNISONE
     Route: 048
  43. PREDNISONE [Concomitant]
     Active Substance: PREDNISONE
  44. PREDNISONE [Concomitant]
     Active Substance: PREDNISONE
  45. PREDNISONE [Concomitant]
     Active Substance: PREDNISONE
  46. PREDNISONE [Concomitant]
     Active Substance: PREDNISONE
  47. APREMILAST [Concomitant]
     Active Substance: APREMILAST
     Indication: Rheumatoid arthritis
  48. APREMILAST [Concomitant]
     Active Substance: APREMILAST
  49. ARAVA [Concomitant]
     Active Substance: LEFLUNOMIDE
     Indication: Rheumatoid arthritis
     Route: 048
  50. ARAVA [Concomitant]
     Active Substance: LEFLUNOMIDE
     Route: 048
  51. ARAVA [Concomitant]
     Active Substance: LEFLUNOMIDE
  52. ARAVA [Concomitant]
     Active Substance: LEFLUNOMIDE
  53. ATOMOXETINE [Concomitant]
     Active Substance: ATOMOXETINE HYDROCHLORIDE
     Indication: Migraine
  54. AZATHIOPRINE SODIUM [Concomitant]
     Active Substance: AZATHIOPRINE SODIUM
     Indication: Migraine
  55. BERINERT [Concomitant]
     Active Substance: HUMAN C1-ESTERASE INHIBITOR
     Indication: Product used for unknown indication
  56. BOTULINUM TOXIN TYPE A [Concomitant]
     Active Substance: BOTULINUM TOXIN TYPE A
     Indication: Product used for unknown indication
  57. BUTRANS [Concomitant]
     Active Substance: BUPRENORPHINE
     Indication: Product used for unknown indication
  58. CALCIUM ASCORBATE [Concomitant]
     Active Substance: CALCIUM ASCORBATE
     Indication: Product used for unknown indication
  59. CANDESARTAN [Concomitant]
     Active Substance: CANDESARTAN
     Indication: Migraine
     Route: 048
  60. CELEBREX [Concomitant]
     Active Substance: CELECOXIB
     Indication: Product used for unknown indication
     Route: 048
  61. CELEBREX [Concomitant]
     Active Substance: CELECOXIB
  62. CERTOLIZUMAB PEGOL [Concomitant]
     Active Substance: CERTOLIZUMAB PEGOL
     Indication: Product used for unknown indication
     Route: 058
  63. CERTOLIZUMAB PEGOL [Concomitant]
     Active Substance: CERTOLIZUMAB PEGOL
     Route: 058
  64. CERTOLIZUMAB PEGOL [Concomitant]
     Active Substance: CERTOLIZUMAB PEGOL
  65. CETIRIZINE HYDROCHLORIDE [Concomitant]
     Active Substance: CETIRIZINE HYDROCHLORIDE
     Indication: Product used for unknown indication
  66. CETIRIZINE HYDROCHLORIDE [Concomitant]
     Active Substance: CETIRIZINE HYDROCHLORIDE
  67. CETIRIZINE HYDROCHLORIDE [Concomitant]
     Active Substance: CETIRIZINE HYDROCHLORIDE
     Route: 048
  68. CETIRIZINE HYDROCHLORIDE [Concomitant]
     Active Substance: CETIRIZINE HYDROCHLORIDE
     Route: 048
  69. CETIRIZINE HYDROCHLORIDE [Concomitant]
     Active Substance: CETIRIZINE HYDROCHLORIDE
  70. CETIRIZINE HYDROCHLORIDE [Concomitant]
     Active Substance: CETIRIZINE HYDROCHLORIDE
     Route: 048
  71. CHOLECALCIFEROL [Concomitant]
     Active Substance: CHOLECALCIFEROL
     Indication: Product used for unknown indication
  72. CIMZIA [Concomitant]
     Active Substance: CERTOLIZUMAB PEGOL
     Indication: Rheumatoid arthritis
     Route: 058
  73. CIMZIA [Concomitant]
     Active Substance: CERTOLIZUMAB PEGOL
     Indication: Psoriasis
     Route: 058
  74. CIMZIA [Concomitant]
     Active Substance: CERTOLIZUMAB PEGOL
  75. CIMZIA [Concomitant]
     Active Substance: CERTOLIZUMAB PEGOL
  76. CIMZIA [Concomitant]
     Active Substance: CERTOLIZUMAB PEGOL
     Route: 058
  77. CORTISONE ACETATE [Concomitant]
     Active Substance: CORTISONE ACETATE
     Indication: Rheumatoid arthritis
  78. CORTISONE ACETATE [Concomitant]
     Active Substance: CORTISONE ACETATE
     Route: 048
  79. CORTISONE ACETATE [Concomitant]
     Active Substance: CORTISONE ACETATE
     Route: 061
  80. COSENTYX [Concomitant]
     Active Substance: SECUKINUMAB
     Indication: Rheumatoid arthritis
  81. COSENTYX [Concomitant]
     Active Substance: SECUKINUMAB
     Indication: Psoriatic arthropathy
  82. DESOXIMETASONE [Concomitant]
     Active Substance: DESOXIMETASONE
     Indication: Rheumatoid arthritis
  83. DESOXIMETASONE [Concomitant]
     Active Substance: DESOXIMETASONE
     Route: 048
  84. DESOXIMETASONE [Concomitant]
     Active Substance: DESOXIMETASONE
     Route: 048
  85. DESOXIMETASONE [Concomitant]
     Active Substance: DESOXIMETASONE
     Route: 058
  86. DESOXIMETASONE [Concomitant]
     Active Substance: DESOXIMETASONE
  87. DICLOFENAC DIETHYLAMINE [Concomitant]
     Active Substance: DICLOFENAC DIETHYLAMINE
     Indication: Product used for unknown indication
  88. DICLOFENAC SODIUM [Concomitant]
     Active Substance: DICLOFENAC\DICLOFENAC SODIUM
     Indication: Product used for unknown indication
  89. DICLOFENAC SODIUM [Concomitant]
     Active Substance: DICLOFENAC\DICLOFENAC SODIUM
  90. DICLOFENAC SODIUM [Concomitant]
     Active Substance: DICLOFENAC\DICLOFENAC SODIUM
     Route: 058
  91. DOMPERIDONE MALEATE [Concomitant]
     Active Substance: DOMPERIDONE MALEATE
     Indication: Product used for unknown indication
  92. ENBREL [Concomitant]
     Active Substance: BENZYL ALCOHOL\ETANERCEPT
     Indication: Rheumatoid arthritis
  93. ENBREL [Concomitant]
     Active Substance: BENZYL ALCOHOL\ETANERCEPT
     Route: 058
  94. ENBREL [Concomitant]
     Active Substance: BENZYL ALCOHOL\ETANERCEPT
  95. ENBREL [Concomitant]
     Active Substance: BENZYL ALCOHOL\ETANERCEPT
     Route: 058
  96. ERELZI [Concomitant]
     Active Substance: ETANERCEPT-SZZS
     Indication: Rheumatoid arthritis
  97. ERELZI [Concomitant]
     Active Substance: ETANERCEPT-SZZS
     Route: 058
  98. ERENUMAB-AOOE [Concomitant]
     Active Substance: ERENUMAB-AOOE
     Indication: Product used for unknown indication
  99. FLUMETHASONE [Concomitant]
     Active Substance: FLUMETHASONE
     Indication: Product used for unknown indication
  100. FLUMETHASONE PIVALATE [Concomitant]
     Active Substance: FLUMETHASONE PIVALATE
     Indication: Product used for unknown indication
  101. FLUMETHASONE PIVALATE [Concomitant]
     Active Substance: FLUMETHASONE PIVALATE
     Route: 058
  102. FOSAMAX [Concomitant]
     Active Substance: ALENDRONATE SODIUM
     Indication: Rheumatoid arthritis
     Route: 016
  103. FOSAMAX [Concomitant]
     Active Substance: ALENDRONATE SODIUM
  104. FOSAMAX [Concomitant]
     Active Substance: ALENDRONATE SODIUM
     Route: 048
  105. FOSAMAX [Concomitant]
     Active Substance: ALENDRONATE SODIUM
     Route: 058
  106. GOLD [Concomitant]
     Active Substance: GOLD
     Indication: Product used for unknown indication
  107. GOLD SODIUM THIOMALATE [Concomitant]
     Active Substance: GOLD SODIUM THIOMALATE
     Indication: Product used for unknown indication
  108. GOLIMUMAB [Concomitant]
     Active Substance: GOLIMUMAB
     Indication: Rheumatoid arthritis
  109. GOLIMUMAB [Concomitant]
     Active Substance: GOLIMUMAB
     Indication: Prostatic specific antigen
     Route: 058
  110. HUMIRA [Concomitant]
     Active Substance: ADALIMUMAB
     Indication: Rheumatoid arthritis
     Route: 058
  111. HUMIRA [Concomitant]
     Active Substance: ADALIMUMAB
     Route: 058
  112. HUMIRA [Concomitant]
     Active Substance: ADALIMUMAB
     Route: 058
  113. HUMIRA [Concomitant]
     Active Substance: ADALIMUMAB
  114. HYDROCORTISONE [Concomitant]
     Active Substance: HYDROCORTISONE\HYDROCORTISONE ACETATE
     Indication: Product used for unknown indication
  115. HYDROXYCHLOROQUINE [Concomitant]
     Active Substance: HYDROXYCHLOROQUINE
     Indication: Rheumatoid arthritis
  116. HYDROXYCHLOROQUINE [Concomitant]
     Active Substance: HYDROXYCHLOROQUINE
     Route: 048
  117. HYDROXYCHLOROQUINE [Concomitant]
     Active Substance: HYDROXYCHLOROQUINE
     Route: 048
  118. HYDROXYCHLOROQUINE [Concomitant]
     Active Substance: HYDROXYCHLOROQUINE
     Route: 048
  119. HYDROXYCHLOROQUINE [Concomitant]
     Active Substance: HYDROXYCHLOROQUINE
  120. HYDROXYCHLOROQUINE [Concomitant]
     Active Substance: HYDROXYCHLOROQUINE
     Route: 058
  121. HYDROXYCHLOROQUINE [Concomitant]
     Active Substance: HYDROXYCHLOROQUINE
     Route: 016
  122. HYDROXYCHLOROQUINE [Concomitant]
     Active Substance: HYDROXYCHLOROQUINE
     Route: 058
  123. HYDROXYCHLOROQUINE SULFATE [Concomitant]
     Active Substance: HYDROXYCHLOROQUINE SULFATE
     Indication: Rheumatoid arthritis
  124. HYDROXYCHLOROQUINE SULFATE [Concomitant]
     Active Substance: HYDROXYCHLOROQUINE SULFATE
     Route: 048
  125. HYDROXYCHLOROQUINE SULFATE [Concomitant]
     Active Substance: HYDROXYCHLOROQUINE SULFATE
     Route: 048
  126. HYDROXYCHLOROQUINE SULFATE [Concomitant]
     Active Substance: HYDROXYCHLOROQUINE SULFATE
  127. INFLIXIMAB [Concomitant]
     Active Substance: INFLIXIMAB
     Indication: Rheumatoid arthritis
     Route: 040
  128. INFLIXIMAB [Concomitant]
     Active Substance: INFLIXIMAB
     Route: 040
  129. LAMICTAL [Concomitant]
     Active Substance: LAMOTRIGINE
     Indication: Product used for unknown indication
     Route: 048
  130. LAMICTAL [Concomitant]
     Active Substance: LAMOTRIGINE
     Route: 048
  131. LEFLUNOMIDE [Concomitant]
     Active Substance: LEFLUNOMIDE
     Indication: Rheumatoid arthritis
  132. LEFLUNOMIDE [Concomitant]
     Active Substance: LEFLUNOMIDE
     Route: 048
  133. LEFLUNOMIDE [Concomitant]
     Active Substance: LEFLUNOMIDE
     Route: 048
  134. LEFLUNOMIDE [Concomitant]
     Active Substance: LEFLUNOMIDE
  135. MEGLUMINE [Concomitant]
     Active Substance: MEGLUMINE
     Indication: Product used for unknown indication
     Route: 040
  136. METHOTREXATE SODIUM [Concomitant]
     Active Substance: METHOTREXATE SODIUM
     Indication: Rheumatoid arthritis
     Route: 013
  137. METHOTREXATE SODIUM [Concomitant]
     Active Substance: METHOTREXATE SODIUM
     Route: 013
  138. METHOTREXATE SODIUM [Concomitant]
     Active Substance: METHOTREXATE SODIUM
  139. METHOTREXATE SODIUM [Concomitant]
     Active Substance: METHOTREXATE SODIUM
  140. METHOTREXATE SODIUM [Concomitant]
     Active Substance: METHOTREXATE SODIUM
     Route: 048
  141. METHOTREXATE SODIUM [Concomitant]
     Active Substance: METHOTREXATE SODIUM
     Route: 048
  142. METHOTREXATE SODIUM [Concomitant]
     Active Substance: METHOTREXATE SODIUM
     Route: 013
  143. METHOTREXATE SODIUM [Concomitant]
     Active Substance: METHOTREXATE SODIUM
     Route: 048
  144. METHOTREXATE SODIUM [Concomitant]
     Active Substance: METHOTREXATE SODIUM
     Route: 048
  145. METHOTREXATE SODIUM [Concomitant]
     Active Substance: METHOTREXATE SODIUM
     Route: 048
  146. METHOTREXATE SODIUM [Concomitant]
     Active Substance: METHOTREXATE SODIUM
     Route: 048
  147. METHOTREXATE SODIUM [Concomitant]
     Active Substance: METHOTREXATE SODIUM
     Route: 048
  148. METHOTREXATE SODIUM [Concomitant]
     Active Substance: METHOTREXATE SODIUM
     Route: 058
  149. METHOTREXATE SODIUM [Concomitant]
     Active Substance: METHOTREXATE SODIUM
  150. METHOTREXATE SODIUM [Concomitant]
     Active Substance: METHOTREXATE SODIUM
  151. METHOTREXATE SODIUM [Concomitant]
     Active Substance: METHOTREXATE SODIUM
     Route: 048
  152. METHOTREXATE SODIUM [Concomitant]
     Active Substance: METHOTREXATE SODIUM
     Route: 016
  153. METHOTREXATE SODIUM [Concomitant]
     Active Substance: METHOTREXATE SODIUM
  154. METHYLPREDNISOLONE SODIUM SUCCINATE [Concomitant]
     Active Substance: METHYLPREDNISOLONE SODIUM SUCCINATE
     Indication: Product used for unknown indication
  155. MINOCYCLINE [Concomitant]
     Active Substance: MINOCYCLINE HYDROCHLORIDE
     Indication: Product used for unknown indication
  156. MINOCYCLINE HYDROCHLORIDE [Concomitant]
     Active Substance: MINOCYCLINE HYDROCHLORIDE
     Indication: Product used for unknown indication
     Route: 030
  157. MINOCYCLINE HYDROCHLORIDE [Concomitant]
     Active Substance: MINOCYCLINE HYDROCHLORIDE
  158. MYRBETRIQ [Concomitant]
     Active Substance: MIRABEGRON
     Indication: Product used for unknown indication
  159. MYRBETRIQ [Concomitant]
     Active Substance: MIRABEGRON
  160. NAPROXEN [Concomitant]
     Active Substance: NAPROXEN
     Indication: Product used for unknown indication
  161. NAPROXEN SODIUM [Concomitant]
     Active Substance: NAPROXEN\NAPROXEN SODIUM
     Indication: Product used for unknown indication
  162. NUCALA [Concomitant]
     Active Substance: MEPOLIZUMAB
     Indication: Product used for unknown indication
  163. OXYCODONE [Concomitant]
     Active Substance: OXYCODONE
     Indication: Product used for unknown indication
  164. OXYCODONE TEREPHTHALATE [Concomitant]
     Active Substance: OXYCODONE TEREPHTHALATE
     Indication: Product used for unknown indication
  165. PHENYLEPHRINE HYDROCHLORIDE [Concomitant]
     Active Substance: PHENYLEPHRINE HYDROCHLORIDE
     Indication: Rheumatoid arthritis
  166. PHTHALYLSULFATHIAZOLE [Concomitant]
     Active Substance: PHTHALYLSULFATHIAZOLE
     Indication: Rheumatoid arthritis
  167. PHTHALYLSULFATHIAZOLE [Concomitant]
     Active Substance: PHTHALYLSULFATHIAZOLE
     Route: 048
  168. PHTHALYLSULFATHIAZOLE [Concomitant]
     Active Substance: PHTHALYLSULFATHIAZOLE
     Route: 040
  169. PHTHALYLSULFATHIAZOLE [Concomitant]
     Active Substance: PHTHALYLSULFATHIAZOLE
     Route: 058
  170. PHTHALYLSULFATHIAZOLE [Concomitant]
     Active Substance: PHTHALYLSULFATHIAZOLE
     Route: 048
  171. PHTHALYLSULFATHIAZOLE [Concomitant]
     Active Substance: PHTHALYLSULFATHIAZOLE
  172. PREDNISONE [Concomitant]
     Active Substance: PREDNISONE
     Indication: Rheumatoid arthritis
  173. PREDNISONE [Concomitant]
     Active Substance: PREDNISONE
  174. PREDNISONE [Concomitant]
     Active Substance: PREDNISONE
  175. PREDNISONE [Concomitant]
     Active Substance: PREDNISONE
  176. PREDNISONE [Concomitant]
     Active Substance: PREDNISONE
  177. PREDNISONE [Concomitant]
     Active Substance: PREDNISONE
     Route: 048
  178. PREDNISONE [Concomitant]
     Active Substance: PREDNISONE
     Route: 048
  179. PSEUDOEPHEDRINE HYDROCHLORIDE [Concomitant]
     Active Substance: PSEUDOEPHEDRINE HYDROCHLORIDE
     Indication: Rheumatoid arthritis
  180. PSEUDOEPHEDRINE HYDROCHLORIDE [Concomitant]
     Active Substance: PSEUDOEPHEDRINE HYDROCHLORIDE
  181. PSEUDOEPHEDRINE HYDROCHLORIDE [Concomitant]
     Active Substance: PSEUDOEPHEDRINE HYDROCHLORIDE
  182. PSEUDOEPHEDRINE HYDROCHLORIDE [Concomitant]
     Active Substance: PSEUDOEPHEDRINE HYDROCHLORIDE
  183. RAMIPRIL [Concomitant]
     Active Substance: RAMIPRIL
     Indication: Rheumatoid arthritis
  184. RAMIPRIL [Concomitant]
     Active Substance: RAMIPRIL
     Route: 016
  185. RAMIPRIL [Concomitant]
     Active Substance: RAMIPRIL
     Route: 040
  186. RANITIDINE [Concomitant]
     Active Substance: RANITIDINE
     Indication: Product used for unknown indication
  187. CETIRIZINE HYDROCHLORIDE\PSEUDOEPHEDRINE HYDROCHLORIDE [Concomitant]
     Active Substance: CETIRIZINE HYDROCHLORIDE\PSEUDOEPHEDRINE HYDROCHLORIDE
     Indication: Rheumatoid arthritis
  188. CETIRIZINE HYDROCHLORIDE\PSEUDOEPHEDRINE HYDROCHLORIDE [Concomitant]
     Active Substance: CETIRIZINE HYDROCHLORIDE\PSEUDOEPHEDRINE HYDROCHLORIDE
  189. CETIRIZINE HYDROCHLORIDE\PSEUDOEPHEDRINE HYDROCHLORIDE [Concomitant]
     Active Substance: CETIRIZINE HYDROCHLORIDE\PSEUDOEPHEDRINE HYDROCHLORIDE
  190. CETIRIZINE HYDROCHLORIDE\PSEUDOEPHEDRINE HYDROCHLORIDE [Concomitant]
     Active Substance: CETIRIZINE HYDROCHLORIDE\PSEUDOEPHEDRINE HYDROCHLORIDE
     Route: 040
  191. REMICADE [Concomitant]
     Active Substance: INFLIXIMAB
     Indication: Rheumatoid arthritis
     Route: 040
  192. REMICADE [Concomitant]
     Active Substance: INFLIXIMAB
     Route: 040
  193. REMICADE [Concomitant]
     Active Substance: INFLIXIMAB
     Route: 058
  194. REMICADE [Concomitant]
     Active Substance: INFLIXIMAB
  195. SULFASALAZINE [Concomitant]
     Active Substance: SULFASALAZINE
     Indication: Rheumatoid arthritis
  196. SIMPONI [Concomitant]
     Active Substance: GOLIMUMAB
     Indication: Product used for unknown indication
     Route: 058
  197. SIMPONI [Concomitant]
     Active Substance: GOLIMUMAB
     Route: 058
  198. SIMPONI [Concomitant]
     Active Substance: GOLIMUMAB
  199. SIMPONI [Concomitant]
     Active Substance: GOLIMUMAB
  200. SIMPONI [Concomitant]
     Active Substance: GOLIMUMAB
     Route: 058
  201. SIRUKUMAB [Concomitant]
     Active Substance: SIRUKUMAB
     Indication: Product used for unknown indication
  202. GOLD SODIUM THIOMALATE [Concomitant]
     Active Substance: GOLD SODIUM THIOMALATE
     Indication: Product used for unknown indication
  203. GOLD SODIUM THIOMALATE [Concomitant]
     Active Substance: GOLD SODIUM THIOMALATE
     Route: 048
  204. STELARA [Concomitant]
     Active Substance: USTEKINUMAB
     Indication: Rheumatoid arthritis
     Route: 058
  205. STELARA [Concomitant]
     Active Substance: USTEKINUMAB
  206. SULFASALAZINE [Concomitant]
     Active Substance: SULFASALAZINE
     Indication: Rheumatoid arthritis
  207. SULFASALAZINE [Concomitant]
     Active Substance: SULFASALAZINE
  208. SULFASALAZINE [Concomitant]
     Active Substance: SULFASALAZINE
  209. SULFASALAZINE [Concomitant]
     Active Substance: SULFASALAZINE
  210. SULFASALAZINE [Concomitant]
     Active Substance: SULFASALAZINE
  211. SULFASALAZINE [Concomitant]
     Active Substance: SULFASALAZINE
     Route: 058
  212. SULFASALAZINE [Concomitant]
     Active Substance: SULFASALAZINE
     Route: 048
  213. SULFASALAZINE [Concomitant]
     Active Substance: SULFASALAZINE
     Route: 048
  214. SULFASALAZINE [Concomitant]
     Active Substance: SULFASALAZINE
     Route: 048
  215. SULFASALAZINE [Concomitant]
     Active Substance: SULFASALAZINE
     Route: 058
  216. SULFASALAZINE [Concomitant]
     Active Substance: SULFASALAZINE
  217. SULFASALAZINE [Concomitant]
     Active Substance: SULFASALAZINE
     Route: 058
  218. SULFASALAZINE [Concomitant]
     Active Substance: SULFASALAZINE
  219. SULFASALAZINE [Concomitant]
     Active Substance: SULFASALAZINE
     Route: 048
  220. SULFASALAZINE [Concomitant]
     Active Substance: SULFASALAZINE
     Route: 058
  221. SULFASALAZINE [Concomitant]
     Active Substance: SULFASALAZINE
     Route: 016
  222. SULFASALAZINE [Concomitant]
     Active Substance: SULFASALAZINE
     Route: 058
  223. TOCILIZUMAB [Concomitant]
     Active Substance: TOCILIZUMAB
     Indication: Rheumatoid arthritis
  224. TOCILIZUMAB [Concomitant]
     Active Substance: TOCILIZUMAB
  225. TOCILIZUMAB [Concomitant]
     Active Substance: TOCILIZUMAB
     Route: 040
  226. TOCILIZUMAB [Concomitant]
     Active Substance: TOCILIZUMAB
     Route: 058
  227. TOCILIZUMAB [Concomitant]
     Active Substance: TOCILIZUMAB
     Route: 058
  228. TOCILIZUMAB [Concomitant]
     Active Substance: TOCILIZUMAB
  229. TOCILIZUMAB [Concomitant]
     Active Substance: TOCILIZUMAB
     Route: 040
  230. TOFACITINIB [Concomitant]
     Active Substance: TOFACITINIB
     Indication: Rheumatoid arthritis
  231. TOFACITINIB CITRATE [Concomitant]
     Active Substance: TOFACITINIB CITRATE
     Indication: Rheumatoid arthritis
     Route: 048
  232. TOFACITINIB CITRATE [Concomitant]
     Active Substance: TOFACITINIB CITRATE
  233. TOPIRAMATE [Concomitant]
     Active Substance: TOPIRAMATE
     Indication: Product used for unknown indication
  234. TOPIRAMATE [Concomitant]
     Active Substance: TOPIRAMATE
  235. TRAMADOL HYDROCHLORIDE [Concomitant]
     Active Substance: TRAMADOL HYDROCHLORIDE
     Indication: Rheumatoid arthritis
     Route: 014
  236. TRAMADOL HYDROCHLORIDE [Concomitant]
     Active Substance: TRAMADOL HYDROCHLORIDE
  237. TRUXIMA [Concomitant]
     Active Substance: RITUXIMAB-ABBS
     Indication: Rheumatoid arthritis
     Dosage: SINGLE DOSE VIAL
  238. TRUXIMA [Concomitant]
     Active Substance: RITUXIMAB-ABBS
     Dosage: SINGLE DOSE VIAL
  239. TRUXIMA [Concomitant]
     Active Substance: RITUXIMAB-ABBS
     Dosage: SINGLE DOSE VIAL
     Route: 040
  240. TRUXIMA [Concomitant]
     Active Substance: RITUXIMAB-ABBS
     Dosage: SINGLE DOSE VIAL
     Route: 058
  241. TRUXIMA [Concomitant]
     Active Substance: RITUXIMAB-ABBS
     Dosage: SINGLE DOSE VIAL
     Route: 043
  242. TRUXIMA [Concomitant]
     Active Substance: RITUXIMAB-ABBS
     Dosage: SINGLE DOSE VIAL
     Route: 040
  243. TRUXIMA [Concomitant]
     Active Substance: RITUXIMAB-ABBS
     Dosage: SINGLE DOSE VIAL
     Route: 040
  244. TRUXIMA [Concomitant]
     Active Substance: RITUXIMAB-ABBS
     Dosage: SINGLE DOSE VIAL
  245. TRUXIMA [Concomitant]
     Active Substance: RITUXIMAB-ABBS
     Dosage: SINGLE DOSE VIAL
  246. TRUXIMA [Concomitant]
     Active Substance: RITUXIMAB-ABBS
     Dosage: SINGLE DOSE VIAL
     Route: 058
  247. TRUXIMA [Concomitant]
     Active Substance: RITUXIMAB-ABBS
     Dosage: SINGLE DOSE VIAL
     Route: 016
  248. TRUXIMA [Concomitant]
     Active Substance: RITUXIMAB-ABBS
     Route: 040
  249. USTEKINUMAB [Concomitant]
     Active Substance: USTEKINUMAB
     Indication: Product used for unknown indication
     Route: 058
  250. USTEKINUMAB [Concomitant]
     Active Substance: USTEKINUMAB
     Route: 058
  251. USTEKINUMAB [Concomitant]
     Active Substance: USTEKINUMAB
  252. XELJANZ [Concomitant]
     Active Substance: TOFACITINIB CITRATE
     Indication: Rheumatoid arthritis
  253. XELJANZ [Concomitant]
     Active Substance: TOFACITINIB CITRATE
  254. XELJANZ [Concomitant]
     Active Substance: TOFACITINIB CITRATE
  255. XELJANZ [Concomitant]
     Active Substance: TOFACITINIB CITRATE

REACTIONS (41)
  - Abdominal discomfort [Unknown]
  - Abdominal distension [Unknown]
  - Adverse reaction [Unknown]
  - Alopecia [Unknown]
  - Anti-cyclic citrullinated peptide antibody positive [Unknown]
  - Arthralgia [Unknown]
  - Blood cholesterol increased [Unknown]
  - Arthropathy [Unknown]
  - Bursitis [Unknown]
  - C-reactive protein increased [Unknown]
  - Coeliac disease [Unknown]
  - Condition aggravated [Unknown]
  - Confusional state [Unknown]
  - Decreased appetite [Unknown]
  - Drug intolerance [Unknown]
  - Drug-induced liver injury [Unknown]
  - Dyspepsia [Unknown]
  - Fatigue [Unknown]
  - Folliculitis [Unknown]
  - Gastrointestinal disorder [Unknown]
  - Gastrooesophageal reflux disease [Unknown]
  - General physical health deterioration [Unknown]
  - Glossodynia [Unknown]
  - Grip strength decreased [Unknown]
  - Hand deformity [Unknown]
  - Headache [Unknown]
  - Hepatic enzyme increased [Unknown]
  - Hypersensitivity [Unknown]
  - Hypertension [Unknown]
  - Hypoaesthesia [Unknown]
  - Inflammation [Unknown]
  - Insomnia [Unknown]
  - Irritable bowel syndrome [Unknown]
  - Joint swelling [Unknown]
  - Malaise [Unknown]
  - Mobility decreased [Unknown]
  - Musculoskeletal stiffness [Unknown]
  - Nail disorder [Unknown]
  - Product label confusion [Unknown]
  - Hospitalisation [Unknown]
  - Off label use [Unknown]
